FAERS Safety Report 7641867-3 (Version None)
Quarter: 2011Q3

REPORT INFORMATION
  Report Type: 
  Country: None (occurrence: None)
  Receive Date: 20110728
  Receipt Date: 20110721
  Transmission Date: 20111222
  Serious: Yes (Hospitalization)
  Sender: FDA-Public Use
  Company Number: CO-ROCHE-791562

PATIENT
  Sex: Female

DRUGS (1)
  1. CELLCEPT [Suspect]
     Dosage: FREQ: QD.
     Route: 048
     Dates: start: 20091215

REACTIONS (2)
  - TRANSPLANT REJECTION [None]
  - URINARY TRACT INFECTION [None]
